FAERS Safety Report 5727835-7 (Version None)
Quarter: 2008Q2

REPORT INFORMATION
  Report Type: 
  Country: None (occurrence: None)
  Receive Date: 20080505
  Receipt Date: 20080423
  Transmission Date: 20081010
  Serious: Yes (Hospitalization)
  Sender: FDA-Public Use
  Company Number: FR-ELI_LILLY_AND_COMPANY-FR200804006098

PATIENT
  Age: 56 Year
  Sex: Male

DRUGS (5)
  1. CYMBALTA [Suspect]
     Indication: DEPRESSION
     Dosage: 60 MG, DAILY (1/D)
     Route: 048
     Dates: start: 20080401, end: 20080401
  2. IMMUNOSUPPRESSIVE AGENTS [Concomitant]
     Indication: SARCOIDOSIS
     Dosage: UNK, UNKNOWN
     Route: 065
  3. CORTICOSTEROIDS [Concomitant]
     Indication: SARCOIDOSIS
     Dosage: UNK, UNKNOWN
     Route: 065
  4. DUPHALAC [Concomitant]
     Indication: HEPATIC ENCEPHALOPATHY PROPHYLAXIS
     Dosage: UNK, UNKNOWN
     Route: 048
  5. INSULIN [Concomitant]
     Indication: DIABETES MELLITUS
     Dosage: UNK, UNKNOWN
     Route: 058

REACTIONS (2)
  - DRUG PRESCRIBING ERROR [None]
  - HEPATIC ENCEPHALOPATHY [None]
